FAERS Safety Report 5541659-5 (Version None)
Quarter: 2007Q4

REPORT INFORMATION
  Report Type: 
  Country: None (occurrence: None)
  Receive Date: 20071210
  Receipt Date: 20071206
  Transmission Date: 20080405
  Serious: Yes (Death, Other)
  Sender: FDA-Public Use
  Company Number: PHBS2007JP20513

PATIENT
  Age: 66 Year
  Sex: Female

DRUGS (1)
  1. VOLTAREN [Suspect]
     Dosage: 25 MG/DAY
     Route: 054
     Dates: start: 20040701, end: 20040701

REACTIONS (3)
  - INTERSTITIAL LUNG DISEASE [None]
  - PANCYTOPENIA [None]
  - PNEUMONIA [None]
